FAERS Safety Report 12546938 (Version 1)
Quarter: 2016Q3

REPORT INFORMATION
  Report Type: Spontaneous
  Country: DZ (occurrence: DZ)
  Receive Date: 20160711
  Receipt Date: 20160711
  Transmission Date: 20161109
  Serious: Yes (Other)
  Sender: FDA-Public Use
  Company Number: DZ-BRISTOL-MYERS SQUIBB COMPANY-BMS-2016-054182

PATIENT
  Age: 43 Year
  Sex: Female

DRUGS (4)
  1. ACTINOMYCIN D [Suspect]
     Active Substance: DACTINOMYCIN
     Indication: ENDOMETRIAL ADENOCARCINOMA
     Route: 065
  2. ETOPOSIDE PHOSPHATE [Suspect]
     Active Substance: ETOPOSIDE PHOSPHATE
     Indication: ENDOMETRIAL ADENOCARCINOMA
     Dosage: 150 MG/M2, UNK
     Route: 065
  3. ETOPOSIDE PHOSPHATE [Suspect]
     Active Substance: ETOPOSIDE PHOSPHATE
     Indication: CHORIOCARCINOMA
  4. ACTINOMYCIN D [Suspect]
     Active Substance: DACTINOMYCIN
     Indication: CHORIOCARCINOMA

REACTIONS (6)
  - Haemoptysis [Unknown]
  - Product use issue [Unknown]
  - Abdominal cavity drainage [Unknown]
  - Ascites [Unknown]
  - Human chorionic gonadotropin increased [Unknown]
  - Anaemia [Unknown]
